FAERS Safety Report 6480380-6 (Version None)
Quarter: 2009Q4

REPORT INFORMATION
  Report Type: 
  Country: None (occurrence: None)
  Receive Date: 20091208
  Receipt Date: 20091201
  Transmission Date: 20100525
  Serious: Yes (Disabling, Other)
  Sender: FDA-Public Use
  Company Number: US-BAYER-200917301BCC

PATIENT
  Age: 52 Year
  Sex: Female

DRUGS (1)
  1. ALEVE [Suspect]
     Indication: ARTHRALGIA
     Route: 065
     Dates: start: 19990101

REACTIONS (16)
  - ANXIETY [None]
  - ASTHENIA [None]
  - ATELECTASIS [None]
  - CHEST PAIN [None]
  - DIASTOLIC DYSFUNCTION [None]
  - DYSARTHRIA [None]
  - DYSPNOEA [None]
  - HYPOAESTHESIA [None]
  - INCOHERENT [None]
  - MENTAL DISORDER [None]
  - MITRAL VALVE INCOMPETENCE [None]
  - MYOCARDIAL INFARCTION [None]
  - PAIN [None]
  - SPEECH DISORDER [None]
  - TRICUSPID VALVE INCOMPETENCE [None]
  - VENTRICULAR HYPERTROPHY [None]
